FAERS Safety Report 9185436 (Version 1)
Quarter: 2012Q4

REPORT INFORMATION
  Report Type: 
  Country: BE (occurrence: BE)
  Receive Date: 20121101
  Receipt Date: 20121101
  Transmission Date: 20130627
  Serious: Yes (Hospitalization, Other)
  Sender: FDA-Public Use
  Company Number: BE-ELI_LILLY_AND_COMPANY-BE201210000696

PATIENT
  Age: 55 None
  Sex: Male

DRUGS (5)
  1. CIALIS [Suspect]
     Dosage: 20 mg, prn
  2. CIALIS [Suspect]
     Dosage: 100 mg, other
     Route: 048
  3. ZYPREXA [Concomitant]
     Dosage: 10 mg, qd
     Route: 048
  4. LYSANXIA [Concomitant]
     Dosage: 20 mg, bid
  5. ESCITALOPRAM [Concomitant]
     Dosage: 10 mg, qd

REACTIONS (4)
  - Transient ischaemic attack [Unknown]
  - Overdose [Unknown]
  - Confusional state [Unknown]
  - Off label use [Unknown]
